FAERS Safety Report 23677828 (Version 1)
Quarter: 2024Q1

REPORT INFORMATION
  Report Type: Spontaneous
  Country: CN (occurrence: CN)
  Receive Date: 20240327
  Receipt Date: 20240327
  Transmission Date: 20240410
  Serious: Yes (Hospitalization, Other)
  Sender: FDA-Public Use
  Company Number: CN-PFIZER INC-PV202400039564

PATIENT
  Age: 56 Year
  Sex: Male

DRUGS (9)
  1. CEFOPERAZONE SODIUM\SULBACTAM SODIUM [Suspect]
     Active Substance: CEFOPERAZONE SODIUM\SULBACTAM SODIUM
     Indication: Anti-infective therapy
     Dosage: UNK
  2. CEFOPERAZONE SODIUM\SULBACTAM SODIUM [Suspect]
     Active Substance: CEFOPERAZONE SODIUM\SULBACTAM SODIUM
     Indication: Nutritional supplementation
  3. CEFOPERAZONE SODIUM\SULBACTAM SODIUM [Suspect]
     Active Substance: CEFOPERAZONE SODIUM\SULBACTAM SODIUM
     Indication: Symptomatic treatment
  4. LINEZOLID [Suspect]
     Active Substance: LINEZOLID
     Indication: Anti-infective therapy
     Dosage: UNK
  5. LINEZOLID [Suspect]
     Active Substance: LINEZOLID
     Indication: Nutritional supplementation
  6. LINEZOLID [Suspect]
     Active Substance: LINEZOLID
     Indication: Symptomatic treatment
  7. POLYMYXIN B [Suspect]
     Active Substance: POLYMYXIN B
     Indication: Anti-infective therapy
     Dosage: UNK
  8. POLYMYXIN B [Suspect]
     Active Substance: POLYMYXIN B
     Indication: Nutritional supplementation
  9. POLYMYXIN B [Suspect]
     Active Substance: POLYMYXIN B
     Indication: Symptomatic treatment

REACTIONS (11)
  - Blood bilirubin increased [Unknown]
  - Bilirubin conjugated increased [Unknown]
  - Jaundice [Unknown]
  - Condition aggravated [Unknown]
  - Body temperature increased [Not Recovered/Not Resolved]
  - Inadequate diet [Unknown]
  - Poor quality sleep [Unknown]
  - Urine flow decreased [Unknown]
  - Infrequent bowel movements [Unknown]
  - Depressed mood [Unknown]
  - Weight decreased [Unknown]

NARRATIVE: CASE EVENT DATE: 20240301
